FAERS Safety Report 21549192 (Version 2)
Quarter: 2024Q2

REPORT INFORMATION
  Report Type: Spontaneous
  Country: US (occurrence: US)
  Receive Date: 20221103
  Receipt Date: 20240502
  Transmission Date: 20240716
  Serious: No
  Sender: FDA-Public Use
  Company Number: US-BIOGEN-2021BI00991448

PATIENT
  Sex: Male

DRUGS (3)
  1. VUMERITY [Suspect]
     Active Substance: DIROXIMEL FUMARATE
     Indication: Multiple sclerosis
     Route: 050
     Dates: start: 20210316
  2. VUMERITY [Suspect]
     Active Substance: DIROXIMEL FUMARATE
     Route: 050
     Dates: start: 20210604, end: 20221017
  3. OCREVUS [Concomitant]
     Active Substance: OCRELIZUMAB
     Route: 050

REACTIONS (16)
  - Drug ineffective [Unknown]
  - Sleep disorder [Not Recovered/Not Resolved]
  - Chills [Not Recovered/Not Resolved]
  - Pain in extremity [Not Recovered/Not Resolved]
  - Paraesthesia [Not Recovered/Not Resolved]
  - Eye pain [Not Recovered/Not Resolved]
  - Muscular weakness [Not Recovered/Not Resolved]
  - Dyspnoea [Not Recovered/Not Resolved]
  - Gait disturbance [Not Recovered/Not Resolved]
  - Sluggishness [Unknown]
  - Multiple sclerosis [Unknown]
  - Drug intolerance [Unknown]
  - Fatigue [Unknown]
  - Gastrointestinal disorder [Not Recovered/Not Resolved]
  - Central nervous system lesion [Unknown]
  - Abdominal pain upper [Unknown]
